FAERS Safety Report 11317463 (Version 1)
Quarter: 2015Q3

REPORT INFORMATION
  Report Type: Spontaneous
  Country: US (occurrence: None)
  Receive Date: 20150727
  Receipt Date: 20150727
  Transmission Date: 20151125
  Serious: Yes (Other)
  Sender: FDA-Public Use
  Company Number: None

PATIENT
  Age: 36 Year
  Sex: Female
  Weight: 56.7 kg

DRUGS (1)
  1. CHANTIX [Suspect]
     Active Substance: VARENICLINE TARTRATE
     Indication: SMOKING CESSATION THERAPY
     Dosage: 1 P BID BID ORAL
     Route: 048
     Dates: start: 20150628, end: 20150723

REACTIONS (5)
  - Crying [None]
  - Depressed mood [None]
  - Agitation [None]
  - Paranoia [None]
  - Loss of libido [None]

NARRATIVE: CASE EVENT DATE: 20150713
